FAERS Safety Report 21704648 (Version 1)
Quarter: 2022Q4

REPORT INFORMATION
  Report Type: Spontaneous
  Country: US (occurrence: US)
  Receive Date: 20221209
  Receipt Date: 20221209
  Transmission Date: 20230113
  Serious: No
  Sender: FDA-Public Use
  Company Number: US-drreddys-SPO/USA/22/0157794

PATIENT
  Age: 42 Year

DRUGS (1)
  1. ZENATANE [Suspect]
     Active Substance: ISOTRETINOIN
     Indication: Cellulitis
     Dosage: RMA ISSUE DATE: 5 AUGUST 2022 05:19:44 PM, 7 SEPTEMBER 2022 08:56:48 AM, 6 OCTOBER 2022 05:41:05 PM

REACTIONS (2)
  - Drug ineffective for unapproved indication [Unknown]
  - Product quality issue [Unknown]
